FAERS Safety Report 6063880-2 (Version None)
Quarter: 2009Q1

REPORT INFORMATION
  Report Type: 
  Country: None (occurrence: None)
  Receive Date: 20090130
  Receipt Date: 20090123
  Transmission Date: 20090719
  Serious: Yes (Hospitalization)
  Sender: FDA-Public Use
  Company Number: SPV1-2009-00116

PATIENT
  Sex: Male

DRUGS (1)
  1. FOSRENOL [Suspect]
     Dosage: 1000 MG, 1X/DAY:QD, ORAL
     Route: 048

REACTIONS (2)
  - NERVOUS SYSTEM DISORDER [None]
  - PAIN IN EXTREMITY [None]
